FAERS Safety Report 9781062 (Version 2)
Quarter: 2013Q4

REPORT INFORMATION
  Report Type: Report from Study
  Country: CA (occurrence: CA)
  Receive Date: 20131224
  Receipt Date: 20131224
  Transmission Date: 20140711
  Serious: Yes (Hospitalization)
  Sender: FDA-Public Use
  Company Number: CA-ASTELLAS-2013US002507

PATIENT
  Age: 51 Year
  Sex: Male

DRUGS (3)
  1. TACROLIMUS MR4 CAPSULES [Suspect]
     Indication: RENAL TRANSPLANT
     Dosage: 11 MG, UID/QD
     Route: 048
     Dates: start: 20130111
  2. MYFORTIC [Concomitant]
     Indication: RENAL TRANSPLANT
     Dosage: 720 MG, BID
     Route: 048
     Dates: start: 20130122
  3. PREDNISONE [Concomitant]
     Indication: RENAL TRANSPLANT
     Dosage: 15 MG, UID/QD
     Route: 048
     Dates: start: 20130111

REACTIONS (1)
  - Congenital cystic kidney disease [Recovered/Resolved]
